FAERS Safety Report 4863879-5 (Version None)
Quarter: 2005Q4

REPORT INFORMATION
  Report Type: 
  Country: None (occurrence: None)
  Receive Date: 20051219
  Receipt Date: 20051202
  Transmission Date: 20060501
  Serious: Yes (Disabling)
  Sender: FDA-Public Use
  Company Number: 05-0149PO

PATIENT
  Age: 5 Year
  Sex: Male

DRUGS (1)
  1. PONTAL (MEFENAMIC ACID) SYRUP [Suspect]
     Dates: start: 19991101

REACTIONS (2)
  - DEVELOPMENTAL DELAY [None]
  - ENCEPHALOPATHY [None]
